FAERS Safety Report 7428745 (Version 10)
Quarter: 2012Q4

REPORT INFORMATION
  Report Type: 
  Country: JP (occurrence: JP)
  Receive Date: 20100623
  Receipt Date: 20121008
  Transmission Date: 20130627
  Serious: Yes (Hospitalization, Other)
  Sender: FDA-Public Use
  Company Number: JP-BAYER-201012929BYL

PATIENT
  Age: 66 Year
  Sex: Male
  Weight: 47 kg

DRUGS (10)
  1. NEXAVAR [Suspect]
     Indication: HEPATIC NEOPLASM MALIGNANT
     Dosage: 400 mg, BID
     Route: 048
     Dates: start: 20090731, end: 20100609
  2. NEXAVAR [Suspect]
     Indication: HEPATIC NEOPLASM MALIGNANT
     Dosage: 200 mg, QD
     Route: 048
     Dates: start: 20100707, end: 20100713
  3. NEXAVAR [Suspect]
     Indication: HEPATIC NEOPLASM MALIGNANT
     Dosage: 400 mg, QD
     Route: 048
     Dates: start: 20100714, end: 20100728
  4. NEXAVAR [Suspect]
     Indication: HEPATIC NEOPLASM MALIGNANT
     Dosage: UNK
     Route: 048
     Dates: start: 201102, end: 20120502
  5. LENDORMIN [Concomitant]
     Dosage: BEFORE NEXAVAR ADMINISTRATION
     Route: 048
  6. UREPEARL [Concomitant]
     Indication: PROPHYLAXIS
     Route: 061
     Dates: start: 20090803
  7. UREPEARL [Concomitant]
     Indication: PROPHYLAXIS
  8. NAUZELIN [Concomitant]
     Dosage: Daily dose 20 mg
     Route: 048
     Dates: start: 20120321
  9. GASTER [Concomitant]
     Dosage: Daily dose 40 mg
     Route: 048
     Dates: start: 20120321
  10. AMLODIN [Concomitant]
     Dosage: Daily dose 5 mg
     Route: 048
     Dates: start: 20120321

REACTIONS (7)
  - Rhabdomyolysis [Recovered/Resolved]
  - Renal failure acute [Recovered/Resolved]
  - Rhabdomyolysis [Recovering/Resolving]
  - Aspartate aminotransferase increased [Recovered/Resolved]
  - Alanine aminotransferase increased [Recovered/Resolved]
  - Palmar-plantar erythrodysaesthesia syndrome [Recovering/Resolving]
  - Hepatitis C [Recovered/Resolved]
